FAERS Safety Report 4594802-9 (Version None)
Quarter: 2005Q1

REPORT INFORMATION
  Report Type: 
  Country: None (occurrence: None)
  Receive Date: 20050223
  Receipt Date: 20050204
  Transmission Date: 20050727
  Serious: Yes (Hospitalization)
  Sender: FDA-Public Use
  Company Number: DSA_25859_2005

PATIENT
  Age: 85 Year
  Sex: Female

DRUGS (7)
  1. ENALAPRIL MALEATE AND HYDROCHLOROTHIAZIDE [Suspect]
     Dosage: 1 TAB QD PO
     Route: 048
     Dates: end: 20041221
  2. CITALOPRAM HYDROBROMIDE [Suspect]
     Dosage: 20 MG TID PO
     Route: 048
     Dates: end: 20041215
  3. ACETAMINOPHEN + TRAMADOL HYDROCHLORIDE [Concomitant]
  4. BENSERAZIDE HYDROCHLORIDE + LEVODOPA [Concomitant]
  5. DOMPERIDONE [Concomitant]
  6. NICARDIPINE HCL [Concomitant]
  7. POLYETHYLENE GLYCOL 4000 [Concomitant]

REACTIONS (6)
  - BLOOD CREATININE DECREASED [None]
  - BLOOD POTASSIUM DECREASED [None]
  - BLOOD UREA DECREASED [None]
  - HYPONATRAEMIA [None]
  - PSYCHOMOTOR SKILLS IMPAIRED [None]
  - PULMONARY CONGESTION [None]
